FAERS Safety Report 9079273 (Version 1)
Quarter: 2013Q1

REPORT INFORMATION
  Report Type: Report from Study
  Country: US (occurrence: US)
  Receive Date: 20130130
  Receipt Date: 20130130
  Transmission Date: 20140127
  Serious: No
  Sender: FDA-Public Use
  Company Number: US-ABBOTT-12P-163-0975002-00

PATIENT
  Age: 33 Year
  Sex: Male

DRUGS (4)
  1. HUMIRA [Suspect]
     Indication: CROHN^S DISEASE
     Dates: start: 201207
  2. LIALDA [Concomitant]
     Indication: CROHN^S DISEASE
     Dosage: 75MG 2 PILLS DAILY
  3. MERCAPTOPURINE [Concomitant]
     Indication: CROHN^S DISEASE
     Dosage: 75MG 2.5 PILLS DAILY
  4. ENTOCORT [Concomitant]
     Indication: CROHN^S DISEASE
     Dosage: 4MG 3 PILLS DAILY

REACTIONS (1)
  - Injection site pain [Not Recovered/Not Resolved]
